FAERS Safety Report 6901449-5 (Version None)
Quarter: 2010Q3

REPORT INFORMATION
  Report Type: 
  Country: None (occurrence: None)
  Receive Date: 20100730
  Receipt Date: 20100722
  Transmission Date: 20110219
  Serious: Yes (Hospitalization)
  Sender: FDA-Public Use
  Company Number: ABCOB-10-0381

PATIENT
  Age: 69 Year
  Sex: Female
  Weight: 84.8226 kg

DRUGS (24)
  1. ABRAXANE [Suspect]
     Indication: PANCREATIC CARCINOMA
     Dosage: (240 MG)
     Dates: start: 20100211, end: 20100326
  2. ERLOTINIB HYDROCHLORIDE [Suspect]
     Indication: PANCREATIC CARCINOMA
     Dosage: (100 MG), ORAL
     Route: 048
     Dates: start: 20100211, end: 20100211
  3. GEMCITABINE [Suspect]
     Indication: PANCREATIC CARCINOMA
     Dosage: (1920 MG), INTRAVENOUS
     Route: 042
     Dates: start: 20100211
  4. PREMARIN [Concomitant]
  5. SYNTHROID [Concomitant]
  6. PROZAC [Concomitant]
  7. LIPITOR [Concomitant]
  8. PREVACID [Concomitant]
  9. ASPIRIN [Concomitant]
  10. MULTIVITAMIN [Concomitant]
  11. OSCAL (CALCIUM CARBONATE) [Concomitant]
  12. PEPCID [Concomitant]
  13. ALEVE [Concomitant]
  14. TUMS (CALCIUM CARBONATE) [Concomitant]
  15. IMODIUM [Concomitant]
  16. MINOCYCLINE HCL [Concomitant]
  17. CARAFATE [Concomitant]
  18. RITALIN [Concomitant]
  19. ULTRASE (PANCRELIPASE) [Concomitant]
  20. COMPAZINE [Concomitant]
  21. PREDNISONE [Concomitant]
  22. LEVAQUIN [Concomitant]
  23. ATENOLOL [Concomitant]
  24. ATIVAN [Concomitant]

REACTIONS (1)
  - INTERSTITIAL LUNG DISEASE [None]
